FAERS Safety Report 23277256 (Version 1)
Quarter: 2023Q4

REPORT INFORMATION
  Report Type: Spontaneous
  Country: US (occurrence: None)
  Receive Date: 20231208
  Receipt Date: 20231208
  Transmission Date: 20240110
  Serious: Yes (Hospitalization)
  Sender: FDA-Public Use
  Company Number: None

PATIENT
  Age: 52 Year
  Sex: Male
  Weight: 72.7 kg

DRUGS (3)
  1. CARBOPLATIN [Suspect]
     Active Substance: CARBOPLATIN
     Dates: start: 20231101, end: 20231122
  2. CISPLATIN [Suspect]
     Active Substance: CISPLATIN
     Dates: start: 20231101, end: 20231122
  3. ALIMTA [Suspect]
     Active Substance: PEMETREXED DISODIUM

REACTIONS (5)
  - Atrial fibrillation [None]
  - Hypotension [None]
  - Hypokalaemia [None]
  - Hypocalcaemia [None]
  - Lactic acidosis [None]

NARRATIVE: CASE EVENT DATE: 20231125
